FAERS Safety Report 5240839-6 (Version None)
Quarter: 2007Q1

REPORT INFORMATION
  Report Type: 
  Country: None (occurrence: None)
  Receive Date: 20061208
  Receipt Date: 20050531
  Transmission Date: 20070707
  Serious: Yes (Other)
  Sender: FDA-Public Use
  Company Number: 2004UW14382

PATIENT
  Age: 72 Year
  Sex: Female
  Weight: 71.2147 kg

DRUGS (10)
  1. CRESTOR [Suspect]
     Indication: BLOOD CHOLESTEROL INCREASED
     Dosage: 10 MG PO
     Route: 048
     Dates: start: 20040426
  2. CRESTOR [Suspect]
     Indication: BLOOD CHOLESTEROL INCREASED
     Dosage: 20 MG PO
     Route: 048
     Dates: start: 20040501
  3. TOPROL-XL [Suspect]
  4. ISOPTIN [Concomitant]
  5. ZESTRIL [Concomitant]
  6. ASPIRIN [Concomitant]
  7. PREVACID [Concomitant]
  8. RESTORIL [Concomitant]
  9. PATANOL [Concomitant]
  10. XALATAN [Concomitant]

REACTIONS (5)
  - ALOPECIA [None]
  - BLOOD PRESSURE INCREASED [None]
  - FEELING ABNORMAL [None]
  - MYALGIA [None]
  - WEIGHT FLUCTUATION [None]
